FAERS Safety Report 19821463 (Version 1)
Quarter: 2021Q3

REPORT INFORMATION
  Report Type: Spontaneous
  Country: GB (occurrence: GB)
  Receive Date: 20210913
  Receipt Date: 20210913
  Transmission Date: 20211014
  Serious: Yes (Other)
  Sender: FDA-Public Use
  Company Number: GB-ACCORD-238070

PATIENT
  Age: 74 Year
  Sex: Female

DRUGS (7)
  1. ATORVASTATIN [Concomitant]
     Active Substance: ATORVASTATIN
  2. QUETIAPINE/QUETIAPINE FUMARATE [Suspect]
     Active Substance: QUETIAPINE FUMARATE
     Indication: PRODUCT USED FOR UNKNOWN INDICATION
     Dosage: AT NIGHT, 50MCG NIGHT TABLET INCREASED TO 100MCG
     Route: 048
  3. MIRTAZAPINE. [Concomitant]
     Active Substance: MIRTAZAPINE
  4. RIVASTIGMINE/RIVASTIGMINE TARTRATE [Concomitant]
     Active Substance: RIVASTIGMINE
     Route: 062
  5. HYPROMELLOSE/HYPROMELLOSE PHTHALATE [Concomitant]
     Active Substance: HYPROMELLOSE PHTHALATE\HYPROMELLOSES
  6. LETROZOLE. [Concomitant]
     Active Substance: LETROZOLE
  7. RISPERIDONE. [Concomitant]
     Active Substance: RISPERIDONE
     Dosage: IN THE MORNING AND AT NIGHT
     Dates: end: 2021

REACTIONS (6)
  - Dyspnoea [Unknown]
  - Hyperhidrosis [Unknown]
  - Tremor [Not Recovered/Not Resolved]
  - Balance disorder [Unknown]
  - Dyskinesia [Unknown]
  - Anxiety [Unknown]
